FAERS Safety Report 23049460 (Version 1)
Quarter: 2023Q4

REPORT INFORMATION
  Report Type: Report from Study
  Country: ZA (occurrence: ZA)
  Receive Date: 20231010
  Receipt Date: 20231010
  Transmission Date: 20240110
  Serious: Yes (Other)
  Sender: FDA-Public Use
  Company Number: ZA-002147023-NVSC2023ZA117016

PATIENT
  Age: 41 Year
  Sex: Female

DRUGS (3)
  1. OFATUMUMAB [Suspect]
     Active Substance: OFATUMUMAB
     Indication: Relapsing-remitting multiple sclerosis
     Dosage: 20 MG, QW (PATIENT CURRENTLY INJECTING WEEKLY AS PER LOADING DOSE SCHEDULE)
     Route: 058
     Dates: start: 20230519
  2. OFATUMUMAB [Suspect]
     Active Substance: OFATUMUMAB
     Indication: Multiple sclerosis
     Dosage: 20 MG, QW
     Route: 058
  3. OFATUMUMAB [Suspect]
     Active Substance: OFATUMUMAB
     Dosage: 20 MG, Q4W
     Route: 058

REACTIONS (24)
  - Multiple sclerosis relapse [Unknown]
  - Optic neuritis [Unknown]
  - Gait disturbance [Recovering/Resolving]
  - Hangover [Unknown]
  - Seizure [Unknown]
  - Tremor [Recovering/Resolving]
  - Cough [Unknown]
  - Limb discomfort [Recovering/Resolving]
  - Bronchitis [Unknown]
  - Dysphonia [Unknown]
  - Insomnia [Recovering/Resolving]
  - Feeling abnormal [Unknown]
  - Muscle spasms [Recovering/Resolving]
  - Pain [Unknown]
  - Photophobia [Unknown]
  - General physical health deterioration [Unknown]
  - Headache [Unknown]
  - Stress [Recovering/Resolving]
  - Headache [Recovered/Resolved]
  - Upper respiratory tract infection [Unknown]
  - Fatigue [Recovering/Resolving]
  - Myalgia [Unknown]
  - Body temperature increased [Unknown]
  - Therapeutic response shortened [Unknown]

NARRATIVE: CASE EVENT DATE: 20230519
